FAERS Safety Report 21302772 (Version 3)
Quarter: 2022Q4

REPORT INFORMATION
  Report Type: Spontaneous
  Country: US (occurrence: US)
  Receive Date: 20220907
  Receipt Date: 20221116
  Transmission Date: 20230112
  Serious: Yes (Hospitalization)
  Sender: FDA-Public Use
  Company Number: US-PFIZER INC-PV202200058770

PATIENT
  Age: 77 Year
  Sex: Male
  Weight: 90.6 kg

DRUGS (21)
  1. VYNDAMAX [Suspect]
     Active Substance: TAFAMIDIS
     Indication: Cardiac amyloidosis
     Dosage: 61 MG
  2. VYNDAMAX [Suspect]
     Active Substance: TAFAMIDIS
     Indication: Cardiac failure congestive
     Dosage: NIGHTLY
     Route: 048
     Dates: start: 20210820
  3. FUROSEMIDE [Concomitant]
     Active Substance: FUROSEMIDE
     Dosage: UNK
  4. CIPRO [Concomitant]
     Active Substance: CIPROFLOXACIN HYDROCHLORIDE
     Dosage: 1 TABLET BY MOUTH 2 TIMES DAILY BEFORE BREAKFAST AND AT NIGHT
     Route: 048
     Dates: start: 20220904
  5. COUMADIN [Concomitant]
     Active Substance: WARFARIN SODIUM
     Indication: Atrial flutter
     Dosage: UNK
  6. COUMADIN [Concomitant]
     Active Substance: WARFARIN SODIUM
     Indication: Atrial thrombosis
  7. XARELTO [Concomitant]
     Active Substance: RIVAROXABAN
     Dosage: UNK
  8. MAGNESIUM HYDROXIDE [Concomitant]
     Active Substance: MAGNESIUM HYDROXIDE
     Indication: Constipation
     Dosage: 400 MG/ 5ML, 30 ML DAILY AS NEEDED
     Route: 048
     Dates: start: 20220904
  9. MELATONIN [Concomitant]
     Active Substance: MELATONIN
     Dosage: 6 MG, NIGHTLY
     Route: 048
  10. OXYCODONE HYDROCHLORIDE [Concomitant]
     Active Substance: OXYCODONE HYDROCHLORIDE
     Indication: Pain
     Dosage: 2.5-5 MG BY MOUTH EVERY 6 HOURS AS NEEDED
     Route: 048
  11. MIRALAX [Concomitant]
     Active Substance: POLYETHYLENE GLYCOL 3350
     Dosage: 17 G, DAILY. STIR AND DISSOLVE POWDER IN ANY 4 TO 8 OUNCES OF BEVARAGE, THEN DRINK
     Route: 048
  12. KLOR-CON M20 [Concomitant]
     Active Substance: POTASSIUM CHLORIDE
     Dosage: UNK, 2X/DAY, 1 TABLET IN MORNING AND 1 IN EVENING WITH MEALS
     Route: 048
     Dates: start: 20220904
  13. ALDACTONE [Concomitant]
     Active Substance: SPIRONOLACTONE
     Dosage: 1 DF, DAILY
     Route: 048
     Dates: start: 20220412
  14. TORSEMIDE [Concomitant]
     Active Substance: TORSEMIDE
     Dosage: 80 MG, 2X/DAY
     Route: 048
     Dates: start: 20220904
  15. TYLENOL [Concomitant]
     Active Substance: ACETAMINOPHEN
     Indication: Pain
     Dosage: 650 MG EVERY 6 HOURS AS NEEDED
     Route: 048
  16. ASPIRIN [Concomitant]
     Active Substance: ASPIRIN
     Dosage: 81 MG, DAILY
     Route: 048
  17. LIPITOR [Concomitant]
     Active Substance: ATORVASTATIN CALCIUM
     Dosage: 40 MG, NIGHTLY
     Route: 048
     Dates: start: 20220420
  18. DULCOLAX (BISACODYL) [Concomitant]
     Active Substance: BISACODYL
     Indication: Constipation
     Dosage: 1 SUPPOSITORY RECTALLY DAILY AS NEEDED
     Route: 054
     Dates: start: 20220904
  19. ENEMEEZ [Concomitant]
     Active Substance: DOCUSATE SODIUM
     Indication: Constipation
     Dosage: 5 ML, DAILY AS NEEDED
     Route: 054
     Dates: start: 20220904
  20. NEURONTIN [Concomitant]
     Active Substance: GABAPENTIN
     Dosage: 100 MG, 3X/DAY IN MORNING, NOON AND EVENING
  21. SENOKOT-S [Concomitant]
     Active Substance: DOCUSATE SODIUM\SENNOSIDES
     Dosage: 50-8.6 MG, 2X/DAY 1 TABLET IN MORNING AND 1 IN EVENING
     Route: 048

REACTIONS (7)
  - Thrombosis [Unknown]
  - Mobility decreased [Unknown]
  - Peripheral swelling [Unknown]
  - Pain in extremity [Unknown]
  - Haematoma [Unknown]
  - Ischaemia [Unknown]
  - Anticoagulation drug level above therapeutic [Unknown]

NARRATIVE: CASE EVENT DATE: 20220801
